FAERS Safety Report 9393159 (Version 2)
Quarter: 2013Q3

REPORT INFORMATION
  Report Type: Spontaneous
  Country: DK (occurrence: FR)
  Receive Date: 20130710
  Receipt Date: 20130722
  Transmission Date: 20140515
  Serious: Yes (Life-Threatening)
  Sender: FDA-Public Use
  Company Number: FR-FRI-1000046522

PATIENT
  Age: 29 Year
  Sex: Female

DRUGS (1)
  1. DINOPROSTONE [Suspect]
     Indication: LABOUR INDUCTION
     Route: 067

REACTIONS (1)
  - Abnormal labour [Recovered/Resolved]
